FAERS Safety Report 6033939-4 (Version None)
Quarter: 2009Q1

REPORT INFORMATION
  Report Type: 
  Country: None (occurrence: None)
  Receive Date: 20090112
  Receipt Date: 20090102
  Transmission Date: 20090719
  Serious: Yes (Other)
  Sender: FDA-Public Use
  Company Number: PHHY2009IT00510

PATIENT
  Sex: Female

DRUGS (4)
  1. TOLEP [Suspect]
     Indication: TRIGEMINAL NEURALGIA
     Dosage: 1800 MG/DAY
     Route: 048
     Dates: start: 20081110
  2. TOLEP [Suspect]
     Dosage: 600 MG
     Route: 048
     Dates: start: 20081130
  3. FOSICOMBI [Concomitant]
     Dosage: UNK
  4. NORVASC [Concomitant]
     Dosage: UNK

REACTIONS (4)
  - CONFUSIONAL STATE [None]
  - DIZZINESS [None]
  - HYPERTENSION [None]
  - MOTOR DYSFUNCTION [None]
